FAERS Safety Report 18070118 (Version 1)
Quarter: 2020Q3

REPORT INFORMATION
  Report Type: Spontaneous
  Country: US (occurrence: US)
  Receive Date: 20200727
  Receipt Date: 20200727
  Transmission Date: 20201103
  Serious: No
  Sender: FDA-Public Use
  Company Number: US-GW PHARMA-202007USGW02567

PATIENT

DRUGS (3)
  1. EPIDIOLEX [Suspect]
     Active Substance: CANNABIDIOL
     Indication: EPILEPSY
     Dosage: 600 MILLIGRAM, BID
     Route: 048
     Dates: start: 20200124, end: 2020
  2. EPIDIOLEX [Suspect]
     Active Substance: CANNABIDIOL
     Dosage: PRODUCT SHIPPED ON 01 JUL 2020
     Route: 048
     Dates: start: 202007
  3. EPIDIOLEX [Suspect]
     Active Substance: CANNABIDIOL
     Dosage: PRODUCT SHIPPED ON 07 MAY 2020
     Route: 048
     Dates: start: 202005, end: 2020

REACTIONS (2)
  - Product closure issue [Unknown]
  - Seizure [Unknown]

NARRATIVE: CASE EVENT DATE: 202005
